FAERS Safety Report 8301197-3 (Version None)
Quarter: 2012Q2

REPORT INFORMATION
  Report Type: 
  Country: None (occurrence: None)
  Receive Date: 20120420
  Receipt Date: 20120412
  Transmission Date: 20120825
  Serious: Yes (Hospitalization)
  Sender: FDA-Public Use
  Company Number: US-BAYER-2012-007455

PATIENT
  Age: 17 Year
  Sex: Female
  Weight: 58.957 kg

DRUGS (1)
  1. YAZ [Suspect]
     Dosage: UNK
     Dates: start: 20110110, end: 20110124

REACTIONS (6)
  - ANXIETY [None]
  - PAIN [None]
  - FEAR [None]
  - MENTAL DISORDER [None]
  - DEPRESSION [None]
  - PULMONARY EMBOLISM [None]
